FAERS Safety Report 9238068 (Version 1)
Quarter: 2013Q1

REPORT INFORMATION
  Report Type: Spontaneous
  Country: US (occurrence: None)
  Receive Date: 20121107
  Receipt Date: 20121107
  Transmission Date: 20140127
  Serious: No
  Sender: FDA-Public Use
  Company Number: 2012HGS-003755

PATIENT
  Age: 43 Year
  Sex: Female
  Weight: 114.76 kg

DRUGS (10)
  1. BENLYSTA [Suspect]
     Indication: SYSTEMIC LUPUS ERYTHEMATOSUS
     Dosage: 1 IN 2 WK
     Route: 041
     Dates: start: 20120227
  2. CYMBALTA (DULOXETINE HYDROCHLORIDE) [Concomitant]
  3. NORCO (VICODIN) (PARACETAMOL, HYDROCODONE BITARTRATE) [Concomitant]
  4. VALIUM (DIAZEPAM) [Concomitant]
  5. HYDROCHLOROTHIAZIDE [Concomitant]
  6. PRAVASTATIN (PRAVASTATIN) [Concomitant]
  7. OMEPRAZOLE (OMEPRAZOLE) [Concomitant]
  8. PHENERGAN (PROMETHAZINE) [Concomitant]
  9. TYLENOL (PARACETAMOL) [Concomitant]
  10. DILAUDID (HYDROMORPHONE HYDROCHLORIDE) [Concomitant]

REACTIONS (9)
  - Local swelling [None]
  - Joint swelling [None]
  - Fungal infection [None]
  - Vulvovaginal pruritus [None]
  - Vaginal odour [None]
  - Pruritus [None]
  - Pruritus [None]
  - Rash [None]
  - Rash [None]
